FAERS Safety Report 5154227-4 (Version None)
Quarter: 2006Q4

REPORT INFORMATION
  Report Type: 
  Country: None (occurrence: None)
  Receive Date: 20061114
  Receipt Date: 20061101
  Transmission Date: 20070319
  Serious: Yes (Hospitalization)
  Sender: FDA-Public Use
  Company Number: GXKR2006TW07021

PATIENT
  Age: 57 Year
  Sex: Male

DRUGS (1)
  1. PAROXETINE HCL [Suspect]
     Indication: DEPRESSED MOOD
     Dosage: 60 MG/DAY

REACTIONS (2)
  - DELIRIUM [None]
  - INAPPROPRIATE ANTIDIURETIC HORMONE SECRETION [None]
